FAERS Safety Report 4835241-2 (Version None)
Quarter: 2005Q4

REPORT INFORMATION
  Report Type: 
  Country: None (occurrence: None)
  Receive Date: 20051114
  Receipt Date: 20051103
  Transmission Date: 20060501
  Serious: Yes (Death)
  Sender: FDA-Public Use
  Company Number: USA0510111755

PATIENT
  Age: 62 Year
  Sex: Male

DRUGS (4)
  1. XIGRIS [Suspect]
     Indication: SEPSIS
  2. PRIMAXIN [Concomitant]
  3. CIPRO [Concomitant]
  4. VASOPRESSORS [Concomitant]

REACTIONS (1)
  - DEATH [None]
